FAERS Safety Report 8844471 (Version 2)
Quarter: 2013Q1

REPORT INFORMATION
  Report Type: Spontaneous
  Country: GB (occurrence: None)
  Receive Date: 20121012
  Receipt Date: 20121106
  Transmission Date: 20140127
  Serious: Yes (Other)
  Sender: FDA-Public Use
  Company Number: 1440486

PATIENT
  Age: 75 Year
  Sex: Female

DRUGS (3)
  1. MEROPENEM [Suspect]
     Indication: INFECTION
     Dates: start: 20120914
  2. ZYVOX [Suspect]
     Indication: INFECTION
     Dates: start: 20120914
  3. ALL OTHER THERAPEUTIC PRODUCTS [Concomitant]

REACTIONS (3)
  - Red blood cell count decreased [None]
  - Gastrointestinal haemorrhage [None]
  - Drug interaction [None]
